FAERS Safety Report 9437270 (Version 1)
Quarter: 2013Q3

REPORT INFORMATION
  Report Type: Report from Study
  Country: GR (occurrence: GR)
  Receive Date: 20130802
  Receipt Date: 20130802
  Transmission Date: 20140515
  Serious: Yes (Other)
  Sender: FDA-Public Use
  Company Number: PHHY2013GR082589

PATIENT
  Age: 39 Year
  Sex: Female

DRUGS (1)
  1. EXTAVIA [Suspect]
     Dosage: UNK UKN, UNK
     Dates: start: 20121111

REACTIONS (1)
  - Intraneural cyst [Unknown]
